FAERS Safety Report 14076481 (Version 1)
Quarter: 2017Q4

REPORT INFORMATION
  Report Type: Spontaneous
  Country: US (occurrence: US)
  Receive Date: 20171011
  Receipt Date: 20171011
  Transmission Date: 20180321
  Serious: Yes (Hospitalization)
  Sender: FDA-Public Use
  Company Number: US-ELI_LILLY_AND_COMPANY-US201710001014

PATIENT
  Age: 61 Year
  Sex: Male

DRUGS (1)
  1. HUMULIN R [Suspect]
     Active Substance: INSULIN HUMAN
     Indication: PANCREATECTOMY
     Dosage: SLIDING SCALE, BEFORE MEALS
     Route: 058
     Dates: start: 201704

REACTIONS (1)
  - Arthropod bite [Recovering/Resolving]

NARRATIVE: CASE EVENT DATE: 20170613
